FAERS Safety Report 18273952 (Version 1)
Quarter: 2020Q3

REPORT INFORMATION
  Report Type: Spontaneous
  Country: IN (occurrence: IN)
  Receive Date: 20200916
  Receipt Date: 20200916
  Transmission Date: 20201103
  Serious: Yes (Other)
  Sender: FDA-Public Use
  Company Number: IN-GLENMARK PHARMACEUTICALS-2020GMK049545

PATIENT
  Age: 45 Year
  Sex: Female

DRUGS (3)
  1. TENELIGLIPTIN [Suspect]
     Active Substance: TENELIGLIPTIN
     Indication: DIABETES MELLITUS MANAGEMENT
     Dosage: 20 MILLIGRAM, OD
     Route: 065
  2. METFORMIN HYDROCHLORIDE. [Suspect]
     Active Substance: METFORMIN HYDROCHLORIDE
     Indication: DIABETES MELLITUS
     Dosage: 500 MILLIGRAM, QD
     Route: 065
  3. GLIMEPIRIDE. [Suspect]
     Active Substance: GLIMEPIRIDE
     Indication: DIABETES MELLITUS
     Dosage: 2 MILLIGRAM, QD
     Route: 065

REACTIONS (3)
  - Rhinitis allergic [Recovered/Resolved]
  - Diabetes mellitus inadequate control [Unknown]
  - Allergic pharyngitis [Recovered/Resolved]
